FAERS Safety Report 8645663 (Version 2)
Quarter: 2012Q4

REPORT INFORMATION
  Report Type: 
  Country: US (occurrence: US)
  Receive Date: 20120702
  Receipt Date: 20121102
  Transmission Date: 20130627
  Serious: No
  Sender: FDA-Public Use
  Company Number: US-ASTRAZENECA-2012SE41464

PATIENT
  Age: 51 Year
  Sex: Female

DRUGS (3)
  1. CRESTOR [Suspect]
     Route: 048
  2. ZETIA [Concomitant]
  3. WELCHOL [Concomitant]

REACTIONS (1)
  - Visual impairment [Unknown]
